FAERS Safety Report 8559802 (Version 4)
Quarter: 2013Q1

REPORT INFORMATION
  Report Type: Report from Study
  Country: US (occurrence: US)
  Receive Date: 20120514
  Receipt Date: 20130131
  Transmission Date: 20140127
  Serious: Yes (Other)
  Sender: FDA-Public Use
  Company Number: US-JNJFOC-20120507651

PATIENT
  Sex: Female
  Weight: 73.48 kg

DRUGS (11)
  1. STELARA [Suspect]
     Indication: PSORIASIS
     Route: 058
     Dates: start: 201205
  2. STELARA [Suspect]
     Indication: PSORIASIS
     Route: 058
     Dates: start: 201111
  3. STELARA [Suspect]
     Indication: PSORIASIS
     Route: 058
     Dates: start: 201201
  4. LOVASTATIN [Concomitant]
     Indication: BLOOD CHOLESTEROL INCREASED
     Route: 048
     Dates: start: 2000
  5. SYNTHROID [Concomitant]
     Indication: HYPOTHYROIDISM
     Dates: start: 2008
  6. ASPIRIN [Concomitant]
     Indication: ANTICOAGULANT THERAPY
     Route: 048
     Dates: start: 1990
  7. ASPIRIN [Concomitant]
     Indication: CARDIOVASCULAR DISORDER
     Route: 048
     Dates: start: 1990
  8. BENICAR HCT [Concomitant]
     Indication: HYPERTENSION
     Route: 048
     Dates: start: 1998
  9. FLUOXETINE [Concomitant]
     Indication: DEPRESSION
     Dates: start: 2011
  10. VITAMIN D [Concomitant]
     Indication: VITAMIN D DEFICIENCY
     Route: 048
  11. TACLONEX [Concomitant]
     Indication: PSORIASIS

REACTIONS (4)
  - Squamous cell carcinoma [Recovered/Resolved]
  - Seborrhoeic keratosis [Not Recovered/Not Resolved]
  - Actinic keratosis [Not Recovered/Not Resolved]
  - Psoriasis [Recovered/Resolved]
